FAERS Safety Report 4307636-7 (Version None)
Quarter: 2004Q1

REPORT INFORMATION
  Report Type: 
  Country: None (occurrence: None)
  Receive Date: 20040225
  Receipt Date: 20030902
  Transmission Date: 20041129
  Serious: Yes (Life-Threatening, Hospitalization)
  Sender: FDA-Public Use
  Company Number: WAES 0309USA00293

PATIENT
  Age: 61 Year
  Sex: Male
  Weight: 86.637 kg

DRUGS (7)
  1. ZOCOR [Suspect]
     Indication: CORONARY ARTERY DISEASE
     Dosage: 40 MG/DAILY/PO
     Route: 048
     Dates: start: 20010601, end: 20030828
  2. COUMADIN [Concomitant]
  3. LASIX [Concomitant]
  4. AMIODARONE HCL [Concomitant]
  5. ATENOLOL [Concomitant]
  6. NIACIN [Concomitant]
  7. POTASSIUM (UNSPECIFIED) [Concomitant]

REACTIONS (2)
  - RHABDOMYOLYSIS [None]
  - UPPER RESPIRATORY TRACT INFECTION [None]
